FAERS Safety Report 8750190 (Version 2)
Quarter: 2013Q1

REPORT INFORMATION
  Report Type: Spontaneous
  Country: FR (occurrence: None)
  Receive Date: 20120809
  Receipt Date: 20130308
  Transmission Date: 20140127
  Serious: Yes (Hospitalization)
  Sender: FDA-Public Use
  Company Number: 2012-002796

PATIENT
  Age: 67 Year
  Sex: Female

DRUGS (1)
  1. ACTONEL [Suspect]
     Dosage: 2 IN 1 MONTH
     Route: 048
     Dates: start: 201201, end: 201205

REACTIONS (4)
  - VISUAL ACUITY REDUCED [None]
  - MACULAR HOLE [None]
  - MYALGIA [None]
  - ARTHRALGIA [None]
